FAERS Safety Report 16497855 (Version 1)
Quarter: 2019Q2

REPORT INFORMATION
  Report Type: Spontaneous
  Country: US (occurrence: US)
  Receive Date: 20190628
  Receipt Date: 20190628
  Transmission Date: 20190711
  Serious: Yes (Other)
  Sender: FDA-Public Use
  Company Number: US-PFIZER INC-2019269189

PATIENT
  Age: 60 Year
  Sex: Female
  Weight: 78.2 kg

DRUGS (1)
  1. RAPAMUNE [Suspect]
     Active Substance: SIROLIMUS
     Indication: HEART TRANSPLANT
     Dosage: 2 MG, DAILY (TWO PILLS IN THE MORNING)

REACTIONS (4)
  - Product use in unapproved indication [Unknown]
  - Pneumonia [Unknown]
  - Cough [Unknown]
  - Off label use [Unknown]
